FAERS Safety Report 21058161 (Version 1)
Quarter: 2022Q3

REPORT INFORMATION
  Report Type: Spontaneous
  Country: BR (occurrence: BR)
  Receive Date: 20220708
  Receipt Date: 20220708
  Transmission Date: 20221027
  Serious: Yes (Disabling)
  Sender: FDA-Public Use
  Company Number: BR-PFIZER INC-202200933754

PATIENT
  Sex: Female

DRUGS (2)
  1. ALPRAZOLAM [Suspect]
     Active Substance: ALPRAZOLAM
     Dosage: 0.25 MG, 2X/DAY (ONE PILL IN THE MORNING AND ANOTHER ONE AT NIGHT)
  2. ALPRAZOLAM [Suspect]
     Active Substance: ALPRAZOLAM
     Dosage: 0.25 MG, 4X/DAY (EVERY 6 HOURS)

REACTIONS (10)
  - Limb discomfort [Unknown]
  - Musculoskeletal discomfort [Unknown]
  - Pain in extremity [Unknown]
  - Anxiety [Unknown]
  - Nervousness [Unknown]
  - Headache [Unknown]
  - Nausea [Unknown]
  - Labyrinthitis [Unknown]
  - Fear [Unknown]
  - Panic reaction [Unknown]
